FAERS Safety Report 21889245 (Version 1)
Quarter: 2023Q1

REPORT INFORMATION
  Report Type: Spontaneous
  Country: US (occurrence: None)
  Receive Date: 20230119
  Receipt Date: 20230119
  Transmission Date: 20230417
  Serious: Yes (Hospitalization)
  Sender: FDA-Public Use
  Company Number: None

PATIENT
  Sex: Male

DRUGS (2)
  1. ADYNOVATE [Suspect]
     Active Substance: ANTIHEMOPHILIC FACTOR, HUMAN RECOMBINANT
     Indication: Factor VIII deficiency
     Dosage: OTHER STRENGTH : 207 UNITS ;?OTHER QUANTITY : 2500 UNITS;?FREQUENCY : DAILY;?INFUSE 2500 UNITS (2250
     Route: 042
     Dates: start: 20160429
  2. ADYNOVATE [Suspect]
     Active Substance: ANTIHEMOPHILIC FACTOR, HUMAN RECOMBINANT
     Indication: Factor VIII deficiency
     Dosage: OTHER STRENGTH : 1942;?OTHER QUANTITY : 2500 UNITS ;?FREQUENCY : DAILY;?INFUSE 2500 UNITS (2250-2750
     Route: 042
     Dates: start: 20160429

REACTIONS (2)
  - Calculus bladder [None]
  - Haemorrhage [None]

NARRATIVE: CASE EVENT DATE: 20221127
